FAERS Safety Report 7849566-X (Version None)
Quarter: 2011Q4

REPORT INFORMATION
  Report Type: 
  Country: None (occurrence: None)
  Receive Date: 20111026
  Receipt Date: 20111014
  Transmission Date: 20120403
  Serious: Yes (Hospitalization)
  Sender: FDA-Public Use
  Company Number: US-JNJFOC-20111006700

PATIENT
  Sex: Female
  Weight: 72.58 kg

DRUGS (22)
  1. TEMAZEPAM [Concomitant]
     Indication: PRODUCT USED FOR UNKNOWN INDICATION
  2. SULFASALAZINE [Concomitant]
     Indication: RHEUMATOID ARTHRITIS
     Route: 048
  3. SALSALATE [Concomitant]
     Indication: RHEUMATOID ARTHRITIS
     Route: 048
  4. B-VITAMIN COMPLEX [Concomitant]
     Indication: RHEUMATOID ARTHRITIS
     Route: 048
  5. MECLIZINE [Concomitant]
     Indication: RHEUMATOID ARTHRITIS
     Route: 048
  6. OXYCODONE HCL [Concomitant]
  7. VIVELLE-DOT [Concomitant]
     Indication: BLOOD OESTROGEN
  8. MESNA [Concomitant]
     Indication: RHEUMATOID ARTHRITIS
     Route: 042
  9. RISEDRONATE SODIUM [Concomitant]
     Indication: BONE DISORDER
  10. MECLIZINE [Concomitant]
     Indication: NAUSEA
  11. PRAMIPEXOLE DIHYDROCHLORIDE [Concomitant]
     Indication: CARDIOVASCULAR DISORDER
  12. RANITIDINE [Concomitant]
     Indication: GASTRIC DISORDER
  13. REMICADE [Suspect]
     Indication: RHEUMATOID ARTHRITIS
     Route: 042
     Dates: start: 20101001
  14. KRISTALOSE [Concomitant]
     Indication: RHEUMATOID ARTHRITIS
     Route: 048
  15. LIDODERM [Concomitant]
     Indication: RHEUMATOID ARTHRITIS
     Route: 062
  16. MATURE MULTIVITAMINS [Concomitant]
     Indication: RHEUMATOID ARTHRITIS
     Route: 048
  17. CYTOXAN [Concomitant]
     Indication: RHEUMATOID ARTHRITIS
     Route: 042
  18. NEURPATH-B [Concomitant]
     Indication: RHEUMATOID ARTHRITIS
  19. METHOTREXATE [Concomitant]
     Indication: RHEUMATOID ARTHRITIS
     Dosage: 2.5MG/TABLET/8 TABLETS ONCE WEEK
     Route: 048
  20. PREDNISONE [Concomitant]
     Indication: RHEUMATOID ARTHRITIS
     Route: 048
  21. FENTANYL-100 [Concomitant]
     Indication: PAIN
  22. HYDROXYCHLOROQUINE SULFATE [Concomitant]
     Indication: RHEUMATOID ARTHRITIS
     Route: 048

REACTIONS (3)
  - CARDIAC ARREST [None]
  - CONDUCTION DISORDER [None]
  - GRAND MAL CONVULSION [None]
